FAERS Safety Report 10174460 (Version 1)
Quarter: 2014Q2

REPORT INFORMATION
  Report Type: Spontaneous
  Country: US (occurrence: US)
  Receive Date: 20140515
  Receipt Date: 20140515
  Transmission Date: 20141212
  Serious: No
  Sender: FDA-Public Use
  Company Number: US-BAYER-2014-072282

PATIENT
  Age: 20 Year
  Sex: Male
  Weight: 56.69 kg

DRUGS (1)
  1. ALEVE TABLET [Suspect]
     Indication: BACK PAIN
     Dosage: UNK UNK, PRN
     Route: 048
     Dates: start: 2013, end: 20140512

REACTIONS (2)
  - Drug ineffective [None]
  - Extra dose administered [None]
